FAERS Safety Report 6975109-9 (Version None)
Quarter: 2010Q3

REPORT INFORMATION
  Report Type: 
  Country: None (occurrence: None)
  Receive Date: 20100910
  Receipt Date: 20090211
  Transmission Date: 20110219
  Serious: No
  Sender: FDA-Public Use
  Company Number: US-WYE-H08165209

PATIENT
  Age: 14 Year
  Sex: Male

DRUGS (3)
  1. PRISTIQ [Suspect]
     Indication: EMOTIONAL DISORDER
     Route: 048
     Dates: start: 20090203
  2. PRISTIQ [Suspect]
     Indication: ASTHENIA
  3. ABILIFY [Concomitant]

REACTIONS (2)
  - ABNORMAL BEHAVIOUR [None]
  - IMPULSIVE BEHAVIOUR [None]
